FAERS Safety Report 5006994-8 (Version None)
Quarter: 2006Q1

REPORT INFORMATION
  Report Type: 
  Country: None (occurrence: None)
  Receive Date: 20060320
  Receipt Date: 20050908
  Transmission Date: 20060701
  Serious: Yes (Other)
  Sender: FDA-Public Use
  Company Number: 2005-09-0683

PATIENT
  Sex: 0

DRUGS (3)
  1. PEG-INTRON [Suspect]
     Indication: HEPATITIS C
  2. RIBAVIRIN [Suspect]
     Indication: HEPATITIS C
     Dosage: ORAL
     Route: 048
  3. PROCRIT [Suspect]
     Indication: ANAEMIA
     Dosage: 60,000 IU/WK
     Route: 015

REACTIONS (1)
  - ANAEMIA [None]
